FAERS Safety Report 21915420 (Version 2)
Quarter: 2023Q1

REPORT INFORMATION
  Report Type: Report from Study
  Country: KR (occurrence: KR)
  Receive Date: 20230126
  Receipt Date: 20230207
  Transmission Date: 20230418
  Serious: Yes (Hospitalization, Other)
  Sender: FDA-Public Use
  Company Number: KR-MYLANLABS-2023M1005514

PATIENT
  Age: 62 Year
  Sex: Male
  Weight: 62.7 kg

DRUGS (207)
  1. XANAX [Suspect]
     Active Substance: ALPRAZOLAM
     Indication: Product used for unknown indication
     Dosage: 2 DOSAGE FORM
     Route: 048
     Dates: start: 20190821, end: 20190821
  2. XANAX [Suspect]
     Active Substance: ALPRAZOLAM
     Dosage: 2 DOSAGE FORM
     Route: 048
     Dates: start: 20190821, end: 20190821
  3. XANAX [Suspect]
     Active Substance: ALPRAZOLAM
     Dosage: 3 DOSAGE FORM, QD
     Route: 048
     Dates: start: 20190903, end: 20191006
  4. XANAX [Suspect]
     Active Substance: ALPRAZOLAM
     Dosage: 2 DOSAGE FORM
     Route: 048
     Dates: start: 20191007, end: 20191007
  5. XANAX [Suspect]
     Active Substance: ALPRAZOLAM
     Dosage: 2.5 DOSAGE FORM
     Route: 048
     Dates: start: 20191008, end: 20191008
  6. XANAX [Suspect]
     Active Substance: ALPRAZOLAM
     Dosage: 3 DOSAGE FORM
     Route: 048
     Dates: start: 20191009, end: 20191102
  7. PREGABALIN [Suspect]
     Active Substance: PREGABALIN
     Indication: Product used for unknown indication
     Dosage: 1 DOSAGE FORM, QD
     Route: 048
     Dates: start: 20191012, end: 20191012
  8. PREGABALIN [Suspect]
     Active Substance: PREGABALIN
     Dosage: 2 DOSAGE FORM, QD
     Route: 048
     Dates: start: 20191013, end: 20191014
  9. PREGABALIN [Suspect]
     Active Substance: PREGABALIN
     Dosage: 1 DOSAGE FORM
     Route: 048
     Dates: start: 20191015, end: 20191015
  10. PREGABALIN [Suspect]
     Active Substance: PREGABALIN
     Dosage: 1 DOSAGE FORM
     Route: 048
     Dates: start: 20191016, end: 20191016
  11. PREGABALIN [Suspect]
     Active Substance: PREGABALIN
     Dosage: 1 DOSAGE FORM
     Route: 048
     Dates: start: 20191017
  12. TRAMADOL HYDROCHLORIDE [Interacting]
     Active Substance: TRAMADOL HYDROCHLORIDE
     Indication: Product used for unknown indication
     Dosage: 100 MILLIGRAM, QD
     Route: 048
     Dates: start: 20181019, end: 20181019
  13. TRAMADOL HYDROCHLORIDE [Interacting]
     Active Substance: TRAMADOL HYDROCHLORIDE
     Dosage: 50 MILLIGRAM, QD
     Route: 048
     Dates: start: 20181020, end: 20181020
  14. TRAMADOL HYDROCHLORIDE [Interacting]
     Active Substance: TRAMADOL HYDROCHLORIDE
     Dosage: 50 MILLIGRAM, QD
     Route: 048
     Dates: start: 20181113, end: 20181113
  15. TRAMADOL HYDROCHLORIDE [Interacting]
     Active Substance: TRAMADOL HYDROCHLORIDE
     Dosage: 50 MILLIGRAM
     Route: 048
     Dates: start: 20181114, end: 20181114
  16. TRAMADOL HYDROCHLORIDE [Interacting]
     Active Substance: TRAMADOL HYDROCHLORIDE
     Dosage: 50 MILLIGRAM
     Route: 048
     Dates: start: 20190717, end: 20190718
  17. TRAMADOL HYDROCHLORIDE [Interacting]
     Active Substance: TRAMADOL HYDROCHLORIDE
     Dosage: 50 MILLIGRAM, QD
     Route: 048
     Dates: start: 20190719, end: 20190721
  18. TRAMADOL HYDROCHLORIDE [Interacting]
     Active Substance: TRAMADOL HYDROCHLORIDE
     Dosage: 50 MILLIGRAM, QD
     Route: 048
     Dates: start: 20190823, end: 20190823
  19. TRAMADOL HYDROCHLORIDE [Interacting]
     Active Substance: TRAMADOL HYDROCHLORIDE
     Dosage: 50 MILLIGRAM
     Route: 048
     Dates: start: 20190906, end: 20190914
  20. TRAMADOL HYDROCHLORIDE [Interacting]
     Active Substance: TRAMADOL HYDROCHLORIDE
     Dosage: 50 MILLIGRAM, QD
     Route: 048
     Dates: start: 20191003, end: 20191005
  21. TRAMADOL HYDROCHLORIDE [Interacting]
     Active Substance: TRAMADOL HYDROCHLORIDE
     Dosage: 50 MILLIGRAM
     Route: 048
     Dates: start: 20191010, end: 20191011
  22. TRAMADOL HYDROCHLORIDE [Interacting]
     Active Substance: TRAMADOL HYDROCHLORIDE
     Dosage: 50 MILLIGRAM, QD
     Route: 048
     Dates: start: 20191031, end: 20191031
  23. TRAMADOL HYDROCHLORIDE [Interacting]
     Active Substance: TRAMADOL HYDROCHLORIDE
     Dosage: 50 MILLIGRAM
     Route: 048
     Dates: start: 20191101, end: 20191105
  24. TRAMADOL HYDROCHLORIDE [Interacting]
     Active Substance: TRAMADOL HYDROCHLORIDE
     Dosage: 50 MILLIGRAM, QD
     Route: 048
     Dates: start: 20191107, end: 20191107
  25. TRAMADOL HYDROCHLORIDE [Interacting]
     Active Substance: TRAMADOL HYDROCHLORIDE
     Dosage: 50 MILLIGRAM, QD
     Route: 048
     Dates: start: 20191118, end: 20191118
  26. PROPACETAMOL HYDROCHLORIDE [Interacting]
     Active Substance: PROPACETAMOL HYDROCHLORIDE
     Indication: Product used for unknown indication
     Dosage: 1 GRAM, QD
     Route: 042
     Dates: start: 20181114, end: 20181114
  27. BISACODYL [Interacting]
     Active Substance: BISACODYL
     Indication: Product used for unknown indication
     Dosage: 10 MILLIGRAM
     Route: 065
     Dates: start: 20190715, end: 20190715
  28. BISACODYL [Interacting]
     Active Substance: BISACODYL
     Dosage: 10 MILLIGRAM
     Route: 065
     Dates: start: 20190807, end: 20190807
  29. BISACODYL [Interacting]
     Active Substance: BISACODYL
     Dosage: 10 MILLIGRAM
     Route: 065
     Dates: start: 20190809, end: 20190809
  30. DIAZEPAM [Interacting]
     Active Substance: DIAZEPAM
     Indication: Depression
     Dosage: 1 DOSAGE FORM, QD
     Route: 048
  31. ACETAMINOPHEN\TRAMADOL HYDROCHLORIDE [Interacting]
     Active Substance: ACETAMINOPHEN\TRAMADOL HYDROCHLORIDE
     Indication: Product used for unknown indication
     Dosage: 1 DOSAGE FORM
     Route: 048
     Dates: start: 20181019, end: 20181027
  32. ACETAMINOPHEN\TRAMADOL HYDROCHLORIDE [Interacting]
     Active Substance: ACETAMINOPHEN\TRAMADOL HYDROCHLORIDE
     Dosage: 1 DOSAGE FORM, QD
     Route: 048
     Dates: start: 20191014, end: 20191014
  33. ACETAMINOPHEN\TRAMADOL HYDROCHLORIDE [Interacting]
     Active Substance: ACETAMINOPHEN\TRAMADOL HYDROCHLORIDE
     Dosage: 1 DOSAGE FORM
     Route: 048
     Dates: start: 20191015, end: 20191015
  34. ACETAMINOPHEN\TRAMADOL HYDROCHLORIDE [Interacting]
     Active Substance: ACETAMINOPHEN\TRAMADOL HYDROCHLORIDE
     Dosage: 1 DOSAGE FORM
     Route: 048
     Dates: start: 20191016, end: 20191027
  35. METOCLOPRAMIDE [Interacting]
     Active Substance: METOCLOPRAMIDE
     Indication: Product used for unknown indication
     Dosage: 5 MILLIGRAM
     Route: 048
     Dates: start: 20181114, end: 20181115
  36. MAGNESIUM OXIDE [Interacting]
     Active Substance: MAGNESIUM OXIDE
     Indication: Product used for unknown indication
     Dosage: 500 MILLIGRAM
     Route: 048
     Dates: start: 20181114, end: 20181114
  37. MAGNESIUM OXIDE [Interacting]
     Active Substance: MAGNESIUM OXIDE
     Dosage: 500 MILLIGRAM
     Route: 048
     Dates: start: 20190225, end: 20190324
  38. MAGNESIUM OXIDE [Interacting]
     Active Substance: MAGNESIUM OXIDE
     Dosage: 1000 MILLIGRAM
     Route: 048
     Dates: start: 20190325, end: 20190804
  39. MAGNESIUM OXIDE [Interacting]
     Active Substance: MAGNESIUM OXIDE
     Dosage: 1 DOSAGE FORM
     Route: 048
     Dates: start: 20190807, end: 20190807
  40. MAGNESIUM OXIDE [Interacting]
     Active Substance: MAGNESIUM OXIDE
     Dosage: 2 DOSAGE FORM
     Route: 048
     Dates: start: 20190808, end: 20191116
  41. ACETAMINOPHEN [Interacting]
     Active Substance: ACETAMINOPHEN
     Indication: Product used for unknown indication
     Dosage: 1 DOSAGE FORM
     Route: 048
     Dates: start: 20181217, end: 20190105
  42. ACETAMINOPHEN [Interacting]
     Active Substance: ACETAMINOPHEN
     Dosage: 1 DOSAGE FORM, QD
     Route: 048
     Dates: start: 20191004, end: 20191004
  43. ACETAMINOPHEN [Interacting]
     Active Substance: ACETAMINOPHEN
     Dosage: 1 DOSAGE FORM, QD
     Route: 048
     Dates: start: 20191007, end: 20191010
  44. SCOPOLAMINE [Interacting]
     Active Substance: SCOPOLAMINE
     Indication: Product used for unknown indication
     Dosage: 1 DOSAGE FORM, QD
     Route: 048
  45. SCOPOLAMINE [Interacting]
     Active Substance: SCOPOLAMINE
     Dosage: 2.5 DOSAGE FORM
     Route: 048
     Dates: start: 20190814, end: 20190814
  46. SCOPOLAMINE [Interacting]
     Active Substance: SCOPOLAMINE
     Dosage: 1 DOSAGE FORM
     Route: 048
     Dates: start: 20190815, end: 20190901
  47. TALNIFLUMATE [Suspect]
     Active Substance: TALNIFLUMATE
     Indication: Product used for unknown indication
     Dosage: 1 DOSAGE FORM
     Route: 048
     Dates: start: 20181217, end: 20190105
  48. BISACODYL\DOCUSATE SODIUM [Interacting]
     Active Substance: BISACODYL\DOCUSATE SODIUM
     Indication: Product used for unknown indication
     Dosage: 10 MILLIGRAM
     Route: 048
     Dates: start: 20190715, end: 20190715
  49. BISACODYL\DOCUSATE SODIUM [Interacting]
     Active Substance: BISACODYL\DOCUSATE SODIUM
     Dosage: 10 MILLIGRAM
     Route: 048
     Dates: start: 20190807, end: 20190807
  50. BISACODYL\DOCUSATE SODIUM [Interacting]
     Active Substance: BISACODYL\DOCUSATE SODIUM
     Dosage: 10 MILLIGRAM
     Route: 048
     Dates: start: 20190809, end: 20190809
  51. BISACODYL\DOCUSATE SODIUM [Interacting]
     Active Substance: BISACODYL\DOCUSATE SODIUM
     Dosage: 10 MILLIGRAM
     Route: 048
     Dates: start: 20190813, end: 20190813
  52. BISACODYL\DOCUSATE SODIUM [Interacting]
     Active Substance: BISACODYL\DOCUSATE SODIUM
     Dosage: UNK
     Route: 048
     Dates: start: 20190815, end: 20190818
  53. BISACODYL\DOCUSATE SODIUM [Interacting]
     Active Substance: BISACODYL\DOCUSATE SODIUM
     Dosage: 10 MILLIGRAM
     Route: 048
     Dates: start: 20191022, end: 20191022
  54. BISACODYL\DOCUSATE SODIUM [Interacting]
     Active Substance: BISACODYL\DOCUSATE SODIUM
     Dosage: 10 MILLIGRAM
     Route: 048
     Dates: start: 20191030, end: 20191030
  55. BISACODYL\DOCUSATE SODIUM [Interacting]
     Active Substance: BISACODYL\DOCUSATE SODIUM
     Dosage: 10 MILLIGRAM
     Route: 048
     Dates: start: 20191105, end: 20191105
  56. BISACODYL\DOCUSATE SODIUM [Interacting]
     Active Substance: BISACODYL\DOCUSATE SODIUM
     Dosage: 10 MILLIGRAM
     Route: 048
     Dates: start: 20191115, end: 20191115
  57. BISACODYL\DOCUSATE SODIUM [Interacting]
     Active Substance: BISACODYL\DOCUSATE SODIUM
     Dosage: 10 MILLIGRAM
     Route: 048
     Dates: start: 20191121, end: 20191210
  58. LACTULOSE [Interacting]
     Active Substance: LACTULOSE
     Indication: Product used for unknown indication
     Dosage: 15 MILLILITER, QD
     Route: 048
     Dates: start: 20190807, end: 20190807
  59. LACTULOSE [Interacting]
     Active Substance: LACTULOSE
     Dosage: 10 MILLIGRAM, QD
     Route: 048
     Dates: start: 20190826, end: 20190908
  60. BUTYLSCOPOLAMINE BROMIDE [Interacting]
     Active Substance: BUTYLSCOPOLAMINE BROMIDE
     Indication: Product used for unknown indication
     Dosage: 1 DOSAGE FORM, QD
     Route: 048
     Dates: start: 20190813, end: 20190813
  61. BUTYLSCOPOLAMINE BROMIDE [Interacting]
     Active Substance: BUTYLSCOPOLAMINE BROMIDE
     Dosage: 2.5 DOSAGE FORM
     Route: 048
     Dates: start: 20190814, end: 20190814
  62. BUTYLSCOPOLAMINE BROMIDE [Interacting]
     Active Substance: BUTYLSCOPOLAMINE BROMIDE
     Dosage: 1 DOSAGE FORM
     Route: 048
     Dates: start: 20190815, end: 20190901
  63. MOSAPRIDE CITRATE DIHYDRATE [Interacting]
     Active Substance: MOSAPRIDE CITRATE DIHYDRATE
     Indication: Product used for unknown indication
     Dosage: 1 DOSAGE FORM, QD
     Route: 048
     Dates: start: 20190808, end: 20190808
  64. MOSAPRIDE CITRATE DIHYDRATE [Interacting]
     Active Substance: MOSAPRIDE CITRATE DIHYDRATE
     Dosage: 2.5 DOSAGE FORM
     Route: 048
     Dates: start: 20190809, end: 20190809
  65. MOSAPRIDE CITRATE DIHYDRATE [Interacting]
     Active Substance: MOSAPRIDE CITRATE DIHYDRATE
     Dosage: 1 DOSAGE FORM
     Route: 048
     Dates: start: 20190810, end: 20190818
  66. MOSAPRIDE CITRATE DIHYDRATE [Interacting]
     Active Substance: MOSAPRIDE CITRATE DIHYDRATE
     Dosage: 1 DOSAGE FORM
     Route: 048
     Dates: start: 20190822, end: 20190912
  67. KETOROLAC TROMETHAMINE [Interacting]
     Active Substance: KETOROLAC TROMETHAMINE
     Indication: Product used for unknown indication
     Dosage: 30 MILLIGRAM, QD
     Route: 065
     Dates: start: 20190719, end: 20190719
  68. KETOROLAC TROMETHAMINE [Interacting]
     Active Substance: KETOROLAC TROMETHAMINE
     Dosage: 30 MILLIGRAM, QD
     Route: 042
     Dates: start: 20190924, end: 20190924
  69. KETOROLAC TROMETHAMINE [Interacting]
     Active Substance: KETOROLAC TROMETHAMINE
     Dosage: 1 DOSAGE FORM
     Route: 065
     Dates: start: 20201013, end: 20201013
  70. TRIMEBUTINE MALEATE [Interacting]
     Active Substance: TRIMEBUTINE MALEATE
     Indication: Product used for unknown indication
     Dosage: 1 DOSAGE FORM
     Route: 048
     Dates: start: 20190908, end: 20190908
  71. TRIMEBUTINE MALEATE [Interacting]
     Active Substance: TRIMEBUTINE MALEATE
     Dosage: 1 DOSAGE FORM
     Route: 048
     Dates: start: 20190909, end: 20191007
  72. MONTMORILLONITE [Suspect]
     Active Substance: MONTMORILLONITE
     Indication: Product used for unknown indication
     Dosage: 20 MILLILITER
     Route: 048
     Dates: start: 20190930, end: 20191009
  73. MONTMORILLONITE [Suspect]
     Active Substance: MONTMORILLONITE
     Dosage: 20 MILLILITER, QD
     Route: 048
     Dates: start: 20191017, end: 20191017
  74. MONTMORILLONITE [Suspect]
     Active Substance: MONTMORILLONITE
     Dosage: 100 MILLILITER, QD
     Route: 048
     Dates: start: 20191018, end: 20191018
  75. MONTMORILLONITE [Suspect]
     Active Substance: MONTMORILLONITE
     Dosage: 20 MILLILITER
     Route: 048
     Dates: start: 20191019, end: 20191021
  76. MONTMORILLONITE [Suspect]
     Active Substance: MONTMORILLONITE
     Dosage: 20 MILLILITER
     Route: 048
     Dates: start: 20191121, end: 20191217
  77. ACETAMINOPHEN\TRAMADOL HYDROCHLORIDE [Interacting]
     Active Substance: ACETAMINOPHEN\TRAMADOL HYDROCHLORIDE
     Indication: Product used for unknown indication
     Dosage: 1 DOSAGE FORM, QD
     Route: 048
     Dates: start: 20191014, end: 20191014
  78. ACETAMINOPHEN\TRAMADOL HYDROCHLORIDE [Interacting]
     Active Substance: ACETAMINOPHEN\TRAMADOL HYDROCHLORIDE
     Dosage: 1 DOSAGE FORM
     Route: 048
     Dates: start: 20191016, end: 20191027
  79. ACETAMINOPHEN\TRAMADOL HYDROCHLORIDE [Interacting]
     Active Substance: ACETAMINOPHEN\TRAMADOL HYDROCHLORIDE
     Dosage: 1 DOSAGE FORM
     Route: 048
     Dates: start: 20191015, end: 20191015
  80. ACETYLCYSTEINE [Interacting]
     Active Substance: ACETYLCYSTEINE
     Indication: Product used for unknown indication
     Dosage: 3200 MILLIGRAM
     Route: 065
     Dates: start: 20190820, end: 20191014
  81. METRONIDAZOLE [Interacting]
     Active Substance: METRONIDAZOLE
     Indication: Product used for unknown indication
     Dosage: 2 DOSAGE FORM
     Route: 048
     Dates: start: 20191018, end: 20191018
  82. METRONIDAZOLE [Interacting]
     Active Substance: METRONIDAZOLE
     Dosage: 2 DOSAGE FORM
     Route: 048
     Dates: start: 20191019, end: 20191021
  83. FENTANYL [Interacting]
     Active Substance: FENTANYL
     Indication: Product used for unknown indication
     Dosage: 600 MICROGRAM, QD
     Route: 065
     Dates: start: 20191022
  84. FUROSEMIDE [Interacting]
     Active Substance: FUROSEMIDE
     Indication: Prophylaxis
     Dosage: 10 MILLIGRAM, QD
     Route: 048
     Dates: start: 20190910, end: 20190910
  85. LOPERAMIDE HYDROCHLORIDE [Interacting]
     Active Substance: LOPERAMIDE HYDROCHLORIDE
     Indication: Product used for unknown indication
     Dosage: 1 DOSAGE FORM, QD
     Route: 048
     Dates: start: 20191023, end: 20191027
  86. PIPERACILLIN SODIUM\TAZOBACTAM SODIUM [Interacting]
     Active Substance: PIPERACILLIN SODIUM\TAZOBACTAM SODIUM
     Indication: Product used for unknown indication
     Dosage: 4.5 GRAM
     Route: 042
     Dates: start: 20190819, end: 20190819
  87. PIPERACILLIN SODIUM\TAZOBACTAM SODIUM [Interacting]
     Active Substance: PIPERACILLIN SODIUM\TAZOBACTAM SODIUM
     Dosage: 4.5 MILLIGRAM
     Route: 042
     Dates: start: 20190820, end: 20190829
  88. PIPERACILLIN SODIUM\TAZOBACTAM SODIUM [Interacting]
     Active Substance: PIPERACILLIN SODIUM\TAZOBACTAM SODIUM
     Dosage: 4.5 GRAM
     Route: 042
     Dates: start: 20190905, end: 20190905
  89. PIPERACILLIN SODIUM\TAZOBACTAM SODIUM [Interacting]
     Active Substance: PIPERACILLIN SODIUM\TAZOBACTAM SODIUM
     Dosage: 4.5 GRAM
     Route: 042
     Dates: start: 20190906, end: 20190912
  90. PIPERACILLIN SODIUM\TAZOBACTAM SODIUM [Interacting]
     Active Substance: PIPERACILLIN SODIUM\TAZOBACTAM SODIUM
     Dosage: 4.5 GRAM
     Route: 042
     Dates: start: 20190924, end: 20190924
  91. PIPERACILLIN SODIUM\TAZOBACTAM SODIUM [Interacting]
     Active Substance: PIPERACILLIN SODIUM\TAZOBACTAM SODIUM
     Dosage: 4.5 GRAM
     Route: 042
     Dates: start: 20190925, end: 20191005
  92. PIPERACILLIN SODIUM\TAZOBACTAM SODIUM [Interacting]
     Active Substance: PIPERACILLIN SODIUM\TAZOBACTAM SODIUM
     Dosage: 4.5 GRAM
     Route: 042
     Dates: start: 20191010, end: 20191013
  93. PIPERACILLIN SODIUM\TAZOBACTAM SODIUM [Interacting]
     Active Substance: PIPERACILLIN SODIUM\TAZOBACTAM SODIUM
     Dosage: 4.5 GRAM
     Route: 042
     Dates: start: 20191028, end: 20191028
  94. PIPERACILLIN SODIUM\TAZOBACTAM SODIUM [Interacting]
     Active Substance: PIPERACILLIN SODIUM\TAZOBACTAM SODIUM
     Dosage: 4.5 GRAM
     Route: 042
     Dates: start: 20191029, end: 20191110
  95. PIPERACILLIN SODIUM\TAZOBACTAM SODIUM [Interacting]
     Active Substance: PIPERACILLIN SODIUM\TAZOBACTAM SODIUM
     Dosage: 4.5 GRAM
     Route: 042
     Dates: start: 20200312, end: 20200331
  96. PIPERACILLIN SODIUM\TAZOBACTAM SODIUM [Interacting]
     Active Substance: PIPERACILLIN SODIUM\TAZOBACTAM SODIUM
     Dosage: 4.5 GRAM
     Route: 042
     Dates: start: 20200416, end: 20200422
  97. PIPERACILLIN SODIUM\TAZOBACTAM SODIUM [Interacting]
     Active Substance: PIPERACILLIN SODIUM\TAZOBACTAM SODIUM
     Dosage: 4.5 GRAM
     Route: 042
     Dates: start: 20200516, end: 20200519
  98. PIPERACILLIN SODIUM\TAZOBACTAM SODIUM [Interacting]
     Active Substance: PIPERACILLIN SODIUM\TAZOBACTAM SODIUM
     Dosage: 1 DOSAGE FORM
     Route: 042
     Dates: start: 20201015, end: 20201019
  99. PSEUDOEPHEDRINE HYDROCHLORIDE [Interacting]
     Active Substance: PSEUDOEPHEDRINE HYDROCHLORIDE
     Indication: Product used for unknown indication
     Dosage: 1 DOSAGE FORM, QD
     Route: 048
     Dates: start: 20190830, end: 20190830
  100. ACETAMINOPHEN [Interacting]
     Active Substance: ACETAMINOPHEN
     Indication: Product used for unknown indication
     Dosage: 1 GRAM, QD
     Route: 042
     Dates: start: 20190819, end: 20190819
  101. LEVOFLOXACIN [Suspect]
     Active Substance: LEVOFLOXACIN
     Indication: Product used for unknown indication
     Dosage: 250 MILLIGRAM
     Route: 048
     Dates: start: 20190825, end: 20190830
  102. LEVOFLOXACIN [Suspect]
     Active Substance: LEVOFLOXACIN
     Dosage: 250 MILLIGRAM
     Route: 048
     Dates: start: 20200307, end: 20200320
  103. PROPACETAMOL HYDROCHLORIDE [Interacting]
     Active Substance: PROPACETAMOL HYDROCHLORIDE
     Indication: Product used for unknown indication
     Dosage: 1 GRAM, QD
     Route: 042
     Dates: start: 20190905, end: 20190905
  104. PROPACETAMOL HYDROCHLORIDE [Interacting]
     Active Substance: PROPACETAMOL HYDROCHLORIDE
     Dosage: 1 GRAM, QD
     Route: 042
     Dates: start: 20191027, end: 20191029
  105. DIETARY SUPPLEMENT\PROBIOTICS [Interacting]
     Active Substance: DIETARY SUPPLEMENT\PROBIOTICS
     Indication: Product used for unknown indication
     Dosage: 2 GRAM
     Route: 048
     Dates: start: 20190908, end: 20190908
  106. DIETARY SUPPLEMENT\PROBIOTICS [Interacting]
     Active Substance: DIETARY SUPPLEMENT\PROBIOTICS
     Dosage: 2 GRAM
     Route: 048
     Dates: start: 20190909, end: 20190911
  107. DIETARY SUPPLEMENT\PROBIOTICS [Interacting]
     Active Substance: DIETARY SUPPLEMENT\PROBIOTICS
     Dosage: 2 GRAM
     Route: 048
     Dates: start: 20191018
  108. MUPIROCIN [Interacting]
     Active Substance: MUPIROCIN
     Indication: Product used for unknown indication
     Dosage: UNK
     Route: 065
     Dates: start: 20200404, end: 202005
  109. CIPROFLOXACIN [Interacting]
     Active Substance: CIPROFLOXACIN
     Indication: Product used for unknown indication
     Dosage: START: 13-OCT-2020, 400 MILLIGRAM
     Route: 042
     Dates: end: 20201015
  110. LACTULOSE [Concomitant]
     Active Substance: LACTULOSE
     Indication: Constipation
     Dosage: 30 MILLILITER, QD
     Route: 048
     Dates: start: 20190822, end: 20190822
  111. LACTULOSE [Concomitant]
     Active Substance: LACTULOSE
     Dosage: 15 MILLILITER, QD
     Route: 048
     Dates: start: 20191121
  112. XANAX [Concomitant]
     Active Substance: ALPRAZOLAM
     Indication: Prophylaxis
     Dosage: 2 DOSAGE FORM, QD
     Route: 048
     Dates: start: 20190902, end: 20190902
  113. XANAX [Concomitant]
     Active Substance: ALPRAZOLAM
     Indication: Sleep disorder
     Dosage: 3 DOSAGE FORM, QD
     Route: 048
     Dates: start: 20190903, end: 20191006
  114. XANAX [Concomitant]
     Active Substance: ALPRAZOLAM
     Dosage: 2 DOSAGE FORM
     Route: 048
     Dates: start: 20191007, end: 20191007
  115. XANAX [Concomitant]
     Active Substance: ALPRAZOLAM
     Dosage: 2.5 DOSAGE FORM
     Route: 048
     Dates: start: 20191008, end: 20191008
  116. XANAX [Concomitant]
     Active Substance: ALPRAZOLAM
     Dosage: 3 DOSAGE FORM, QD
     Route: 048
     Dates: start: 20191009, end: 20191102
  117. XANAX [Concomitant]
     Active Substance: ALPRAZOLAM
     Dosage: 2 DOSAGE FORM, QD
     Route: 048
     Dates: start: 20190902, end: 20190902
  118. XANAX [Concomitant]
     Active Substance: ALPRAZOLAM
     Dosage: 3 DOSAGE FORM, QD
     Route: 048
     Dates: start: 20191009, end: 20191102
  119. UBIDECARENONE [Concomitant]
     Active Substance: UBIDECARENONE
     Dosage: 5 MILLIGRAM
     Route: 048
     Dates: end: 20190818
  120. UBIDECARENONE [Concomitant]
     Active Substance: UBIDECARENONE
     Dosage: 1 DOSAGE FORM
     Route: 048
     Dates: start: 20190822, end: 20191006
  121. METHYLCOBALAMIN [Concomitant]
     Active Substance: METHYLCOBALAMIN
     Indication: Hypovitaminosis
     Dosage: 500 MICROGRAM
     Route: 048
     Dates: end: 20190818
  122. METHYLCOBALAMIN [Concomitant]
     Active Substance: METHYLCOBALAMIN
     Dosage: 1 DOSAGE FORM
     Route: 048
     Dates: start: 20190822, end: 20191006
  123. METHYLCOBALAMIN [Concomitant]
     Active Substance: METHYLCOBALAMIN
     Dosage: 1 DOSAGE FORM
     Route: 065
     Dates: start: 20191007, end: 20191008
  124. METHYLCOBALAMIN [Concomitant]
     Active Substance: METHYLCOBALAMIN
     Dosage: 1 DOSAGE FORM
     Route: 048
     Dates: start: 20191009
  125. THIAMINE HYDROCHLORIDE [Concomitant]
     Active Substance: THIAMINE HYDROCHLORIDE
     Indication: Hypovitaminosis
     Dosage: 50 MILLIGRAM, QD
     Route: 042
     Dates: start: 20181019, end: 20181019
  126. THIAMINE HYDROCHLORIDE [Concomitant]
     Active Substance: THIAMINE HYDROCHLORIDE
     Dosage: 50 MILLIGRAM, QD
     Route: 042
     Dates: start: 20190708, end: 20190722
  127. THIAMINE HYDROCHLORIDE [Concomitant]
     Active Substance: THIAMINE HYDROCHLORIDE
     Dosage: 50 MILLIGRAM, QD
     Route: 042
     Dates: start: 20190805, end: 20190815
  128. THIAMINE HYDROCHLORIDE [Concomitant]
     Active Substance: THIAMINE HYDROCHLORIDE
     Dosage: 50 MILLIGRAM, QD
     Route: 042
     Dates: start: 20190820, end: 20191011
  129. THIAMINE HYDROCHLORIDE [Concomitant]
     Active Substance: THIAMINE HYDROCHLORIDE
     Dosage: 1 DOSAGE FORM, QD
     Route: 042
     Dates: start: 20191212, end: 20200103
  130. THIAMINE HYDROCHLORIDE [Concomitant]
     Active Substance: THIAMINE HYDROCHLORIDE
     Dosage: 1 DOSAGE FORM, QD
     Route: 042
     Dates: start: 20200122, end: 20200208
  131. THIAMINE HYDROCHLORIDE [Concomitant]
     Active Substance: THIAMINE HYDROCHLORIDE
     Dosage: 50 MILLIGRAM, QD
     Route: 042
     Dates: start: 20191020, end: 20191120
  132. THIAMINE HYDROCHLORIDE [Concomitant]
     Active Substance: THIAMINE HYDROCHLORIDE
     Dosage: 1 DOSAGE FORM, QD
     Route: 042
     Dates: start: 20200320, end: 20200506
  133. ACETYLCYSTEINE [Concomitant]
     Active Substance: ACETYLCYSTEINE
     Indication: Sputum abnormal
     Dosage: 300 MILLIGRAM
     Route: 042
     Dates: start: 20190225, end: 20190325
  134. ACETYLCYSTEINE [Concomitant]
     Active Substance: ACETYLCYSTEINE
     Dosage: 300 MILLIGRAM
     Route: 042
     Dates: start: 20190429, end: 20190429
  135. ACETYLCYSTEINE [Concomitant]
     Active Substance: ACETYLCYSTEINE
     Dosage: 300 MILLIGRAM
     Route: 048
     Dates: start: 20190821, end: 20190821
  136. ACETYLCYSTEINE [Concomitant]
     Active Substance: ACETYLCYSTEINE
     Dosage: 300 MILLIGRAM
     Route: 048
     Dates: start: 20190822, end: 20190827
  137. ACETYLCYSTEINE [Concomitant]
     Active Substance: ACETYLCYSTEINE
     Dosage: 300 MILLIGRAM
     Route: 048
     Dates: start: 20190828, end: 20190831
  138. ACETYLCYSTEINE [Concomitant]
     Active Substance: ACETYLCYSTEINE
     Dosage: 600 MILLIGRAM
     Route: 048
     Dates: start: 20190901, end: 20190902
  139. ACETYLCYSTEINE [Concomitant]
     Active Substance: ACETYLCYSTEINE
     Dosage: 600 MILLIGRAM
     Route: 048
     Dates: start: 20190903, end: 20191120
  140. ERDOSTEINA [Concomitant]
     Indication: Sputum abnormal
     Dosage: 60 MILLIGRAM, QD
     Route: 048
     Dates: start: 20190822, end: 20190903
  141. GLYCOPYRROLATE [Concomitant]
     Active Substance: GLYCOPYRROLATE
     Indication: Saliva altered
     Dosage: 1 DOSAGE FORM
     Route: 048
     Dates: start: 20191106, end: 20201006
  142. BACLOFEN [Concomitant]
     Active Substance: BACLOFEN
     Indication: Muscle strain
     Dosage: 10 MILLIGRAM, QD
     Route: 048
     Dates: start: 20200426
  143. CLONAZEPAM [Concomitant]
     Active Substance: CLONAZEPAM
     Dosage: 1 DOSAGE FORM
     Route: 048
     Dates: start: 20200427
  144. TRAMADOL HYDROCHLORIDE AND ACETAMINOPHEN [Concomitant]
     Active Substance: ACETAMINOPHEN\TRAMADOL HYDROCHLORIDE
     Indication: Pain
     Dosage: 1 DOSAGE FORM, QD
     Route: 048
     Dates: end: 20181018
  145. TRAMADOL HYDROCHLORIDE AND ACETAMINOPHEN [Concomitant]
     Active Substance: ACETAMINOPHEN\TRAMADOL HYDROCHLORIDE
     Dosage: 1 DOSAGE FORM
     Route: 048
     Dates: start: 20181019, end: 20181027
  146. TRAMADOL HYDROCHLORIDE AND ACETAMINOPHEN [Concomitant]
     Active Substance: ACETAMINOPHEN\TRAMADOL HYDROCHLORIDE
     Dosage: 1 DOSAGE FORM, QD
     Route: 048
     Dates: start: 20181112, end: 20181114
  147. RANITIDINE HYDROCHLORIDE [Concomitant]
     Active Substance: RANITIDINE HYDROCHLORIDE
     Dosage: 300 MILLIGRAM, QD
     Route: 048
     Dates: end: 20190324
  148. ESOMEPRAZOLE [Concomitant]
     Active Substance: ESOMEPRAZOLE
     Dosage: 20 MILLIGRAM, QD
     Route: 048
     Dates: end: 20190718
  149. TRAMADOL HYDROCHLORIDE [Concomitant]
     Active Substance: TRAMADOL HYDROCHLORIDE
     Dosage: 100 MILLIGRAM, QD
     Route: 048
     Dates: start: 20181019, end: 20181019
  150. TRAMADOL HYDROCHLORIDE [Concomitant]
     Active Substance: TRAMADOL HYDROCHLORIDE
     Dosage: 50 MILLIGRAM, QD
     Route: 048
     Dates: start: 20181020, end: 20181020
  151. TRAMADOL HYDROCHLORIDE [Concomitant]
     Active Substance: TRAMADOL HYDROCHLORIDE
     Dosage: 50 MILLIGRAM, QD
     Route: 048
     Dates: start: 20190904, end: 20190905
  152. LIDOCAINE\PRILOCAINE [Concomitant]
     Active Substance: LIDOCAINE\PRILOCAINE
     Dosage: UNK, QD
     Route: 061
     Dates: start: 20181112, end: 20181113
  153. TAMSULOSIN HYDROCHLORIDE [Concomitant]
     Active Substance: TAMSULOSIN HYDROCHLORIDE
     Indication: Micturition disorder
     Dosage: 1 DOSAGE FORM, QD
     Route: 048
     Dates: start: 20190429, end: 20190818
  154. TAMSULOSIN HYDROCHLORIDE [Concomitant]
     Active Substance: TAMSULOSIN HYDROCHLORIDE
     Dosage: 1 DOSAGE FORM, QD
     Route: 048
     Dates: start: 20190822
  155. AMLODIPINE BESYLATE [Concomitant]
     Active Substance: AMLODIPINE BESYLATE
     Dosage: 0.5 DOSAGE FORM, QD
     Route: 048
     Dates: start: 20190708, end: 20190818
  156. FAMOTIDINE [Concomitant]
     Active Substance: FAMOTIDINE
     Indication: Prophylaxis
     Dosage: 30 MILLIGRAM
     Route: 048
     Dates: start: 20190717, end: 20190717
  157. FAMOTIDINE [Concomitant]
     Active Substance: FAMOTIDINE
     Dosage: 20 MILLIGRAM
     Route: 048
     Dates: start: 20190820, end: 20190823
  158. MEPERIDINE HYDROCHLORIDE [Concomitant]
     Active Substance: MEPERIDINE HYDROCHLORIDE
     Indication: Pain
     Dosage: 25 MILLIGRAM, QD
     Route: 030
     Dates: start: 20190717, end: 20190717
  159. MIDAZOLAM [Concomitant]
     Active Substance: MIDAZOLAM
     Dosage: 1 MILLIGRAM, QD
     Route: 065
     Dates: start: 20190717, end: 20190717
  160. MIDAZOLAM [Concomitant]
     Active Substance: MIDAZOLAM
     Dosage: 10 MILLIGRAM, QD
     Route: 042
     Dates: start: 20190904, end: 20190904
  161. CEFTRIAXONE SODIUM [Concomitant]
     Active Substance: CEFTRIAXONE SODIUM
     Indication: Infestation
     Dosage: 1 GRAM, QD
     Route: 065
     Dates: start: 20020717, end: 20190718
  162. POTASSIUM CHLORIDE [Concomitant]
     Active Substance: POTASSIUM CHLORIDE
     Indication: Electrolyte imbalance
     Dosage: 2 DOSAGE FORM
     Route: 065
     Dates: start: 20190823, end: 20190828
  163. POTASSIUM CHLORIDE [Concomitant]
     Active Substance: POTASSIUM CHLORIDE
     Dosage: 2 DOSAGE FORM
     Route: 048
     Dates: start: 20190928, end: 20190929
  164. POTASSIUM CHLORIDE [Concomitant]
     Active Substance: POTASSIUM CHLORIDE
     Dosage: 30 MILLILITER, QD
     Route: 042
     Dates: start: 20190821, end: 20190821
  165. POTASSIUM CHLORIDE [Concomitant]
     Active Substance: POTASSIUM CHLORIDE
     Dosage: 20 MILLILITER, QD
     Route: 042
     Dates: start: 20190822, end: 20190823
  166. POTASSIUM CHLORIDE [Concomitant]
     Active Substance: POTASSIUM CHLORIDE
     Dosage: 10 MILLILITER, QD
     Route: 042
     Dates: start: 20190926, end: 20190926
  167. POTASSIUM CHLORIDE [Concomitant]
     Active Substance: POTASSIUM CHLORIDE
     Dosage: 20 MILLILITER, QD
     Route: 042
     Dates: start: 20191007, end: 20191011
  168. BISACODYL\DOCUSATE SODIUM [Concomitant]
     Active Substance: BISACODYL\DOCUSATE SODIUM
     Indication: Constipation
     Dosage: 10 MILLIGRAM
     Route: 048
     Dates: start: 20190823, end: 20190823
  169. BISACODYL\DOCUSATE SODIUM [Concomitant]
     Active Substance: BISACODYL\DOCUSATE SODIUM
     Dosage: 10 MILLIGRAM
     Route: 048
     Dates: start: 20191011, end: 20191011
  170. TIROPRAMIDE HYDROCHLORIDE [Concomitant]
     Indication: Seizure
     Dosage: 1 DOSAGE FORM
     Route: 048
     Dates: start: 20190825, end: 20190825
  171. TIROPRAMIDE HYDROCHLORIDE [Concomitant]
     Indication: Pain
     Dosage: 1 DOSAGE FORM, QD
     Route: 048
     Dates: start: 20190826, end: 20190826
  172. BACILLUS SUBTILIS;ENTEROCOCCUS FAECIUM [Concomitant]
     Indication: Constipation
     Dosage: 2 GRAM
     Route: 048
     Dates: start: 20190912, end: 20191017
  173. SACCHAROMYCES CEREVISIAE [Concomitant]
     Active Substance: SACCHAROMYCES CEREVISIAE
     Indication: Constipation
     Dosage: 282.5 MILLIGRAM
     Route: 048
     Dates: start: 20191001, end: 20191017
  174. SACCHAROMYCES CEREVISIAE [Concomitant]
     Active Substance: SACCHAROMYCES CEREVISIAE
     Dosage: 565 MILLIGRAM
     Route: 048
     Dates: start: 20191018, end: 20191022
  175. SACCHAROMYCES CEREVISIAE [Concomitant]
     Active Substance: SACCHAROMYCES CEREVISIAE
     Dosage: 565 MILLIGRAM
     Route: 048
     Dates: start: 20191023, end: 20191023
  176. FUROSEMIDE [Concomitant]
     Active Substance: FUROSEMIDE
     Indication: Prophylaxis
     Dosage: 30 MILLIGRAM, QD
     Route: 048
     Dates: start: 20190822, end: 20190822
  177. FUROSEMIDE [Concomitant]
     Active Substance: FUROSEMIDE
     Dosage: 20 MILLIGRAM, QD
     Route: 048
     Dates: start: 20190827, end: 20190827
  178. FUROSEMIDE [Concomitant]
     Active Substance: FUROSEMIDE
     Dosage: 10 MILLIGRAM, QD
     Route: 048
     Dates: start: 20190830, end: 20190830
  179. FUROSEMIDE [Concomitant]
     Active Substance: FUROSEMIDE
     Dosage: 20 MILLIGRAM, QD
     Route: 048
     Dates: start: 20190901, end: 20190901
  180. FUROSEMIDE [Concomitant]
     Active Substance: FUROSEMIDE
     Dosage: 20 MILLIGRAM, QD
     Route: 048
     Dates: start: 20190905, end: 20190905
  181. FUROSEMIDE [Concomitant]
     Active Substance: FUROSEMIDE
     Dosage: 3 MILLIGRAM, QD
     Route: 048
     Dates: start: 20190907, end: 20190907
  182. FUROSEMIDE [Concomitant]
     Active Substance: FUROSEMIDE
     Dosage: 10 MILLIGRAM, QD
     Route: 048
     Dates: start: 20190918, end: 20190918
  183. FUROSEMIDE [Concomitant]
     Active Substance: FUROSEMIDE
     Dosage: 10 MILLIGRAM, QD
     Route: 048
     Dates: start: 20190920, end: 20190921
  184. FUROSEMIDE [Concomitant]
     Active Substance: FUROSEMIDE
     Dosage: 10 MILLIGRAM, QD
     Route: 048
     Dates: start: 20190925, end: 20190925
  185. FUROSEMIDE [Concomitant]
     Active Substance: FUROSEMIDE
     Dosage: 20 MILLIGRAM, QD
     Route: 048
     Dates: start: 20190929, end: 20190929
  186. FUROSEMIDE [Concomitant]
     Active Substance: FUROSEMIDE
     Dosage: 20 MILLIGRAM, QD
     Route: 048
     Dates: start: 20191003, end: 20191003
  187. FUROSEMIDE [Concomitant]
     Active Substance: FUROSEMIDE
     Dosage: 10 MILLIGRAM, QD
     Route: 048
     Dates: start: 20191012, end: 20191012
  188. FUROSEMIDE [Concomitant]
     Active Substance: FUROSEMIDE
     Dosage: 20 MILLIGRAM, QD
     Route: 048
     Dates: start: 20191110, end: 20191110
  189. REMIFENTANIL HYDROCHLORIDE [Concomitant]
     Active Substance: REMIFENTANIL HYDROCHLORIDE
     Indication: Product used for unknown indication
     Dosage: 10 MILLIGRAM, QD
     Route: 042
     Dates: start: 20190820, end: 20190821
  190. REMIFENTANIL HYDROCHLORIDE [Concomitant]
     Active Substance: REMIFENTANIL HYDROCHLORIDE
     Dosage: 5 MILLIGRAM, QD
     Route: 042
     Dates: start: 20190822, end: 20190830
  191. REMIFENTANIL HYDROCHLORIDE [Concomitant]
     Active Substance: REMIFENTANIL HYDROCHLORIDE
     Dosage: 5 MILLIGRAM, QD
     Route: 042
     Dates: start: 20190901, end: 20190905
  192. REMIFENTANIL HYDROCHLORIDE [Concomitant]
     Active Substance: REMIFENTANIL HYDROCHLORIDE
     Dosage: 10 MILLIGRAM, QD
     Route: 042
     Dates: start: 20190906, end: 20190907
  193. REMIFENTANIL HYDROCHLORIDE [Concomitant]
     Active Substance: REMIFENTANIL HYDROCHLORIDE
     Dosage: 5 MILLIGRAM, QD
     Route: 042
     Dates: start: 20190908, end: 20190908
  194. DIAZEPAM [Concomitant]
     Active Substance: DIAZEPAM
     Indication: Depression
     Dosage: 1 DOSAGE FORM, QD
     Route: 048
     Dates: start: 20200303
  195. CHOLECALCIFEROL [Concomitant]
     Active Substance: CHOLECALCIFEROL
     Indication: Hypovitaminosis
     Dosage: 1 DOSAGE FORM
     Route: 048
     Dates: start: 20200430
  196. CALCIUM CITRATE HYDRATE [Concomitant]
     Indication: Prophylaxis
     Dosage: 1 DOSAGE FORM, QD
     Route: 048
     Dates: start: 20201007
  197. SULFAMETHOXAZOLE\TRIMETHOPRIM [Concomitant]
     Active Substance: SULFAMETHOXAZOLE\TRIMETHOPRIM
     Dosage: 2 DOSAGE FORM
     Route: 048
     Dates: start: 20201019, end: 20201020
  198. ERDOSTEINE [Concomitant]
     Active Substance: ERDOSTEINE
     Indication: Sputum abnormal
     Dosage: 60 MILLIGRAM, QD
     Route: 048
     Dates: start: 20190822, end: 20190903
  199. QUETIAPINE [Concomitant]
     Active Substance: QUETIAPINE
     Indication: Sleep disorder
     Dosage: 1 DOSAGE FORM, QD
     Route: 048
     Dates: start: 20190901, end: 20190913
  200. QUETIAPINE [Concomitant]
     Active Substance: QUETIAPINE
     Dosage: 1.5 DOSAGE FORM, QD
     Route: 048
     Dates: start: 20190914, end: 20190914
  201. QUETIAPINE [Concomitant]
     Active Substance: QUETIAPINE
     Dosage: 1 DOSAGE FORM, QD
     Route: 048
     Dates: start: 20190915, end: 20190915
  202. QUETIAPINE [Concomitant]
     Active Substance: QUETIAPINE
     Dosage: 2 DOSAGE FORM, QD
     Route: 048
     Dates: start: 20191016, end: 20191016
  203. QUETIAPINE [Concomitant]
     Active Substance: QUETIAPINE
     Dosage: 0.5 DOSAGE FORM, QD
     Route: 048
     Dates: start: 20191017, end: 20191018
  204. QUETIAPINE [Concomitant]
     Active Substance: QUETIAPINE
     Dosage: 1.5 DOSAGE FORM, QD
     Route: 048
     Dates: start: 20191019, end: 20191019
  205. QUETIAPINE [Concomitant]
     Active Substance: QUETIAPINE
     Dosage: 0.75 DOSAGE FORM, QD
     Route: 048
     Dates: start: 20191020, end: 20191020
  206. QUETIAPINE [Concomitant]
     Active Substance: QUETIAPINE
     Dosage: 87.5 MILLIGRAM
     Route: 048
     Dates: start: 20191021, end: 20191022
  207. QUETIAPINE [Concomitant]
     Active Substance: QUETIAPINE
     Dosage: 1 DOSAGE FORM, QD
     Route: 048
     Dates: start: 20191023, end: 20191105

REACTIONS (2)
  - Septic shock [Recovered/Resolved]
  - Drug interaction [Unknown]
